FAERS Safety Report 7223058-3 (Version None)
Quarter: 2011Q1

REPORT INFORMATION
  Report Type: 
  Country: None (occurrence: None)
  Receive Date: 20110112
  Receipt Date: 20110111
  Transmission Date: 20110831
  Serious: Yes (Hospitalization)
  Sender: FDA-Public Use
  Company Number: US-AMGEN-USASP2011000511

PATIENT

DRUGS (1)
  1. ENBREL [Suspect]
     Indication: RHEUMATOID ARTHRITIS
     Dosage: 50 MG, QWK
     Dates: start: 20100701

REACTIONS (7)
  - ANGINA PECTORIS [None]
  - DEVICE FAILURE [None]
  - ARTHRALGIA [None]
  - INJECTION SITE ERYTHEMA [None]
  - CYSTITIS [None]
  - INJECTION SITE PAIN [None]
  - CORONARY ANGIOPLASTY [None]
